FAERS Safety Report 7083324-1 (Version None)
Quarter: 2010Q4

REPORT INFORMATION
  Report Type: 
  Country: None (occurrence: None)
  Receive Date: 20101104
  Receipt Date: 20101029
  Transmission Date: 20110411
  Serious: Yes (Death, Hospitalization, Other)
  Sender: FDA-Public Use
  Company Number: PHHY2010BR73467

PATIENT
  Sex: Female
  Weight: 48 kg

DRUGS (5)
  1. EXELON [Suspect]
     Indication: MEMORY IMPAIRMENT
     Dosage: 9 MG/5CM2 , 1 PATCH EVERY DAY
     Route: 062
     Dates: start: 20100701
  2. EXELON [Suspect]
     Dosage: 18 MG/10CM2, 1PATCH EVERY DAY
     Route: 062
     Dates: start: 20100801
  3. PURAN T4 [Concomitant]
     Indication: HYPOTHYROIDISM
     Dosage: 1 TABLET IN FASTING
     Route: 048
  4. DALMADORM [Concomitant]
     Indication: SLEEP DISORDER
     Dosage: 1 TABLET PER DAY
  5. RIVOTRIL [Concomitant]
     Indication: ANXIETY
     Dosage: 20 DROPS PER DAY SPLIT IN 2 INGESTIONS
     Route: 048

REACTIONS (1)
  - MYOCARDIAL INFARCTION [None]
